FAERS Safety Report 11224847 (Version 2)
Quarter: 2024Q3

REPORT INFORMATION
  Report Type: Spontaneous
  Country: DE (occurrence: DE)
  Receive Date: 20150629
  Receipt Date: 20240715
  Transmission Date: 20241017
  Serious: Yes (Other)
  Sender: AUROBINDO
  Company Number: DE-AUROBINDO-AUR-APL-2015-05363

PATIENT
  Age: 26 Year
  Sex: Female
  Weight: 56 kg

DRUGS (5)
  1. AMLODIPINE [Suspect]
     Active Substance: AMLODIPINE BESYLATE
     Indication: Pulmonary arterial hypertension
     Dosage: 1.25 MG, TWO TIMES A DAY
     Route: 048
     Dates: start: 20131004, end: 20140626
  2. SILDENAFIL [Suspect]
     Active Substance: SILDENAFIL
     Indication: Pulmonary arterial hypertension
     Dosage: 20 MG, 3 TIMES A DAY
     Route: 048
     Dates: start: 20131004, end: 20140626
  3. NEOVIN [Concomitant]
     Indication: Prophylaxis of neural tube defect
     Dosage: 0.4 MG, ONCE A DAY
     Route: 048
  4. BETAMETHASONE [Concomitant]
     Active Substance: BETAMETHASONE\BETAMETHASONE DIPROPIONATE
     Indication: Maternal therapy to enhance foetal lung maturity
     Dosage: 12 MG, ONCE A DAY
     Route: 065
  5. Imidin [Concomitant]
     Indication: Product used for unknown indication
     Dosage: AT NIGHT
     Route: 045
     Dates: start: 20140505

REACTIONS (4)
  - Oligohydramnios [Recovered/Resolved]
  - Amniotic fluid volume decreased [Recovered/Resolved]
  - Exposure during pregnancy [Recovered/Resolved]
  - Maternal exposure during pregnancy [Recovered/Resolved]
